FAERS Safety Report 6049527-X (Version None)
Quarter: 2009Q1

REPORT INFORMATION
  Report Type: 
  Country: None (occurrence: None)
  Receive Date: 20090121
  Receipt Date: 20090105
  Transmission Date: 20090719
  Serious: Yes (Hospitalization)
  Sender: FDA-Public Use
  Company Number: STI-2009-00031

PATIENT
  Age: 11 Month
  Sex: Male

DRUGS (10)
  1. CLOBETASOL PROPIONATE [Suspect]
     Indication: ECZEMA
  2. HYDROCORTISONE 1%-P CREAM [Suspect]
     Indication: ECZEMA
     Dosage: TOPICAL
     Route: 061
  3. BETAMETHASONE [Suspect]
     Indication: ECZEMA
     Dosage: TOPICAL
     Route: 061
  4. HYDROCORTISONE 1% OINTMENT [Suspect]
     Indication: ECZEMA
     Dosage: TOPICAL
     Route: 061
  5. BETAMETHASONE DIPROPIONATE [Suspect]
     Indication: ECZEMA
  6. BETAMETHASONE DIPROPIONATE [Suspect]
     Indication: SKIN DISORDER
  7. DESONIDE [Suspect]
     Indication: ECZEMA
  8. DESONIDE [Suspect]
     Indication: SKIN DISORDER
  9. MOMETASONE FUROATE [Suspect]
     Indication: ECZEMA
  10. MOMETASONE FUROATE [Suspect]
     Indication: SKIN DISORDER

REACTIONS (5)
  - CUSHING'S SYNDROME [None]
  - DERMATITIS ATOPIC [None]
  - GROWTH RETARDATION [None]
  - HYPERTENSION [None]
  - SUPERINFECTION [None]
